FAERS Safety Report 14923617 (Version 1)
Quarter: 2018Q2

REPORT INFORMATION
  Report Type: Spontaneous
  Country: US (occurrence: US)
  Receive Date: 20180522
  Receipt Date: 20180522
  Transmission Date: 20180711
  Serious: Yes (Other)
  Sender: FDA-Public Use
  Company Number: US-PFIZER INC-2018204555

PATIENT
  Age: 27 Year

DRUGS (1)
  1. ADVIL COLD AND SINUS [Suspect]
     Active Substance: IBUPROFEN\PSEUDOEPHEDRINE HYDROCHLORIDE
     Indication: VOMITING
     Dosage: UNK

REACTIONS (4)
  - Impaired gastric emptying [Unknown]
  - Malaise [Unknown]
  - Drug administered to patient of inappropriate age [Unknown]
  - Dependence [Unknown]

NARRATIVE: CASE EVENT DATE: 2014
